FAERS Safety Report 9087181 (Version 1)
Quarter: 2013Q1

REPORT INFORMATION
  Report Type: Spontaneous
  Country: US (occurrence: US)
  Receive Date: 20130201
  Receipt Date: 20130201
  Transmission Date: 20140127
  Serious: Yes (Other)
  Sender: FDA-Public Use
  Company Number: US-JNJFOC-20110803335

PATIENT
  Sex: Male
  Weight: 81.65 kg

DRUGS (12)
  1. DURAGESIC [Suspect]
     Indication: BACK PAIN
     Dosage: ONE 100 UG/HR  AND ONE 25 UG/HR PATCH
     Route: 062
     Dates: start: 201107
  2. DURAGESIC [Suspect]
     Indication: BACK PAIN
     Dosage: ONE 100 UG/HR  AND ONE 25 UG/HR PATCH
     Route: 062
  3. DURAGESIC [Suspect]
     Indication: CANCER PAIN
     Dosage: ONE 100 UG/HR  AND ONE 25 UG/HR PATCH
     Route: 062
     Dates: start: 201107
  4. DURAGESIC [Suspect]
     Indication: CANCER PAIN
     Dosage: ONE 100 UG/HR  AND ONE 25 UG/HR PATCH
     Route: 062
  5. DURAGESIC [Suspect]
     Indication: PAIN
     Dosage: ONE 100 UG/HR  AND ONE 25 UG/HR PATCH
     Route: 062
     Dates: start: 201107
  6. DURAGESIC [Suspect]
     Indication: PAIN
     Dosage: ONE 100 UG/HR  AND ONE 25 UG/HR PATCH
     Route: 062
  7. DILAUDID [Concomitant]
     Indication: PAIN
     Route: 048
  8. LYRICA [Concomitant]
     Indication: NERVOUS SYSTEM DISORDER
     Route: 048
  9. LYRICA [Concomitant]
     Indication: FIBROMYALGIA
     Route: 048
  10. SOMA [Concomitant]
     Indication: PAIN
     Route: 048
  11. VALIUM [Concomitant]
     Indication: SLEEP DISORDER
     Route: 048
  12. AMBIEN [Concomitant]
     Indication: SLEEP DISORDER
     Route: 048

REACTIONS (6)
  - Abnormal loss of weight [Recovered/Resolved]
  - Somnolence [Not Recovered/Not Resolved]
  - Feeling abnormal [Not Recovered/Not Resolved]
  - Drug ineffective [Recovered/Resolved]
  - Bedridden [Recovered/Resolved]
  - Inappropriate schedule of drug administration [Recovered/Resolved]
